FAERS Safety Report 7592134-8 (Version None)
Quarter: 2011Q3

REPORT INFORMATION
  Report Type: 
  Country: None (occurrence: None)
  Receive Date: 20110706
  Receipt Date: 20110622
  Transmission Date: 20111222
  Serious: Yes (Hospitalization, Other)
  Sender: FDA-Public Use
  Company Number: JP-ELI_LILLY_AND_COMPANY-JP201106007831

PATIENT
  Age: 55 Year
  Sex: Male

DRUGS (1)
  1. HUMULIN R [Suspect]
     Dosage: 1200 U, SINGLE
     Route: 058

REACTIONS (4)
  - SUICIDE ATTEMPT [None]
  - HYPOGLYCAEMIA [None]
  - INTENTIONAL OVERDOSE [None]
  - ALTERED STATE OF CONSCIOUSNESS [None]
